FAERS Safety Report 4884534-1 (Version None)
Quarter: 2006Q1

REPORT INFORMATION
  Report Type: 
  Country: None (occurrence: None)
  Receive Date: 20060117
  Receipt Date: 20060102
  Transmission Date: 20060701
  Serious: Yes (Death)
  Sender: FDA-Public Use
  Company Number: 2006S1000017

PATIENT
  Age: 70 Year
  Sex: Male

DRUGS (6)
  1. CLOZAPINE [Suspect]
     Dosage: 150 MG; QD; ORAL
     Route: 048
     Dates: start: 20020608, end: 20060101
  2. ENTACAPONE [Concomitant]
  3. ATORVASTATIN CALCIUM [Concomitant]
  4. CARBIDOPA AND LEVODOPA [Concomitant]
  5. CITALOPRAM HYDROBROMIDE [Concomitant]
  6. OXYBUTYNIN [Concomitant]

REACTIONS (2)
  - LUNG DISORDER [None]
  - NEOPLASM MALIGNANT [None]
